FAERS Safety Report 9625536 (Version 1)
Quarter: 2013Q4

REPORT INFORMATION
  Report Type: Spontaneous
  Country: US (occurrence: None)
  Receive Date: 20131015
  Receipt Date: 20131015
  Transmission Date: 20140711
  Serious: Yes (Life-Threatening, Hospitalization)
  Sender: FDA-Public Use
  Company Number: None

PATIENT
  Age: 23 Year
  Sex: Female
  Weight: 72.58 kg

DRUGS (1)
  1. LAMOTRIGINE [Suspect]
     Indication: BIPOLAR I DISORDER
     Dosage: 1 TABLET QD ORAL
     Route: 048
     Dates: start: 20130917, end: 20130926

REACTIONS (7)
  - Meningitis aseptic [None]
  - Nausea [None]
  - Vomiting [None]
  - Rash macular [None]
  - Hepatic enzyme increased [None]
  - Nuchal rigidity [None]
  - Body temperature increased [None]
